FAERS Safety Report 14998283 (Version 1)
Quarter: 2018Q2

REPORT INFORMATION
  Report Type: Spontaneous
  Country: US (occurrence: US)
  Receive Date: 20180520
  Receipt Date: 20180520
  Transmission Date: 20180711
  Serious: No
  Sender: FDA-Public Use
  Company Number: None

PATIENT
  Age: 45 Year
  Sex: Female
  Weight: 68.04 kg

DRUGS (8)
  1. VITAMIN D [Concomitant]
     Active Substance: CHOLECALCIFEROL
  2. MIRENA [Suspect]
     Active Substance: LEVONORGESTREL
  3. TUMERIC [Concomitant]
     Active Substance: HERBALS\TURMERIC
  4. PRISTIC [Concomitant]
  5. CYMBALTA [Concomitant]
     Active Substance: DULOXETINE HYDROCHLORIDE
  6. DIOVAN [Concomitant]
     Active Substance: VALSARTAN
  7. ABILIFY [Concomitant]
     Active Substance: ARIPIPRAZOLE
  8. HAIR GROWTH SUPPLEMENT [Concomitant]

REACTIONS (2)
  - Tinnitus [None]
  - Migraine [None]

NARRATIVE: CASE EVENT DATE: 20150901
